FAERS Safety Report 25096959 (Version 1)
Quarter: 2025Q1

REPORT INFORMATION
  Report Type: Spontaneous
  Country: RU (occurrence: RU)
  Receive Date: 20250319
  Receipt Date: 20250319
  Transmission Date: 20250408
  Serious: Yes (Other)
  Sender: ELI LILLY AND COMPANY
  Company Number: RU-ELI_LILLY_AND_COMPANY-RU202503012939

PATIENT
  Age: 58 Year
  Sex: Female
  Weight: 74 kg

DRUGS (5)
  1. OLUMIANT [Suspect]
     Active Substance: BARICITINIB
     Indication: COVID-19
     Dosage: 4 MG, DAILY
     Route: 048
     Dates: start: 20210618, end: 20210622
  2. FAVIPIRAVIR [Suspect]
     Active Substance: FAVIPIRAVIR
     Indication: COVID-19
     Dosage: 600 MG, BID
     Route: 048
     Dates: start: 20210615, end: 20210621
  3. ACETAMINOPHEN [Concomitant]
     Active Substance: ACETAMINOPHEN
     Indication: Hyperthermia
     Dosage: 1000 MG, DAILY
     Route: 042
     Dates: start: 20210616, end: 20210618
  4. ILSIRA [Concomitant]
     Indication: COVID-19
     Dosage: 324 MG, DAILY
     Route: 058
     Dates: start: 20210620, end: 20210620
  5. BROMHEXINE [Concomitant]
     Active Substance: BROMHEXINE
     Indication: Bronchitis
     Dosage: 8 MG, QID
     Route: 048
     Dates: start: 20210616

REACTIONS (2)
  - Vomiting [Recovering/Resolving]
  - Nausea [Recovering/Resolving]

NARRATIVE: CASE EVENT DATE: 20210621
